FAERS Safety Report 4307893-7 (Version None)
Quarter: 2004Q1

REPORT INFORMATION
  Report Type: 
  Country: None (occurrence: None)
  Receive Date: 20040225
  Receipt Date: 20030212
  Transmission Date: 20041129
  Serious: Yes (Other)
  Sender: FDA-Public Use
  Company Number: WAES 0212USA01354

PATIENT
  Age: 63 Year
  Sex: Male

DRUGS (5)
  1. ZOCOR [Suspect]
     Dosage: 80 MG/DAILY/PO
     Route: 048
  2. GLUCOPHAGE XR [Concomitant]
  3. HYZAAR [Concomitant]
  4. NEURONTIN [Concomitant]
  5. NORVASC [Concomitant]

REACTIONS (2)
  - BLOOD CREATINE PHOSPHOKINASE INCREASED [None]
  - MYALGIA [None]
